FAERS Safety Report 18975121 (Version 5)
Quarter: 2021Q2

REPORT INFORMATION
  Report Type: Spontaneous
  Country: DE (occurrence: DE)
  Receive Date: 20210306
  Receipt Date: 20210611
  Transmission Date: 20210717
  Serious: Yes (Hospitalization, Other)
  Sender: FDA-Public Use
  Company Number: DE-ROCHE-2778673

PATIENT
  Age: 62 Year
  Sex: Male

DRUGS (6)
  1. CEFURAX [Concomitant]
     Active Substance: CEFUROXIME AXETIL
  2. OCREVUS [Suspect]
     Active Substance: OCRELIZUMAB
     Route: 042
     Dates: start: 20200706
  3. RAMIPRIL. [Concomitant]
     Active Substance: RAMIPRIL
     Route: 048
  4. CEFUROXIM [Concomitant]
     Active Substance: CEFUROXIME
     Dosage: 1?0?1?0 FOR FOUR DAYS
  5. OCREVUS [Suspect]
     Active Substance: OCRELIZUMAB
     Indication: MULTIPLE SCLEROSIS
     Route: 042
     Dates: start: 2018
  6. RAMILICH [Concomitant]
     Active Substance: RAMIPRIL
     Dosage: 1?0?0?0

REACTIONS (2)
  - Bladder transitional cell carcinoma [Unknown]
  - Bladder cancer [Unknown]
